FAERS Safety Report 7707101-0 (Version None)
Quarter: 2011Q3

REPORT INFORMATION
  Report Type: 
  Country: None (occurrence: None)
  Receive Date: 20110824
  Receipt Date: 20110818
  Transmission Date: 20111222
  Serious: Yes (Other)
  Sender: FDA-Public Use
  Company Number: US-PFIZER INC-2007036729

PATIENT
  Sex: Male

DRUGS (3)
  1. NEURONTIN [Suspect]
     Indication: ARTHRALGIA
  2. NEURONTIN [Suspect]
     Indication: NERVE INJURY
     Dosage: 300 MG, UNK
     Route: 048
     Dates: start: 20030501
  3. NEURONTIN [Suspect]
     Indication: PAIN IN EXTREMITY

REACTIONS (8)
  - HEADACHE [None]
  - SUICIDAL IDEATION [None]
  - DEPRESSION [None]
  - VISION BLURRED [None]
  - ASTHENIA [None]
  - DRUG INEFFECTIVE FOR UNAPPROVED INDICATION [None]
  - THINKING ABNORMAL [None]
  - COORDINATION ABNORMAL [None]
